FAERS Safety Report 8374802-3 (Version None)
Quarter: 2012Q2

REPORT INFORMATION
  Report Type: 
  Country: None (occurrence: None)
  Receive Date: 20120521
  Receipt Date: 20120509
  Transmission Date: 20120825
  Serious: Yes (Hospitalization)
  Sender: FDA-Public Use
  Company Number: CA-JNJFOC-20120406118

PATIENT
  Sex: Female
  Weight: 55.9 kg

DRUGS (1)
  1. REMICADE [Suspect]
     Indication: COLITIS ULCERATIVE
     Route: 042
     Dates: start: 20120330

REACTIONS (2)
  - MATERNAL EXPOSURE DURING PREGNANCY [None]
  - HOSPITALISATION [None]
